FAERS Safety Report 6391469-4 (Version None)
Quarter: 2009Q4

REPORT INFORMATION
  Report Type: 
  Country: None (occurrence: None)
  Receive Date: 20091007
  Receipt Date: 20090930
  Transmission Date: 20100525
  Serious: Yes (Hospitalization)
  Sender: FDA-Public Use
  Company Number: US-JNJFOC-20091000955

PATIENT
  Age: 57 Year
  Sex: Female
  Weight: 95.26 kg

DRUGS (5)
  1. TOPAMAX [Suspect]
     Route: 048
  2. TOPAMAX [Suspect]
     Indication: MIGRAINE PROPHYLAXIS
     Route: 048
  3. TOPIRAMATE [Suspect]
     Indication: MIGRAINE PROPHYLAXIS
     Route: 048
  4. FLEXERIL [Concomitant]
     Route: 065
  5. NEURONTIN [Concomitant]
     Route: 065

REACTIONS (4)
  - DEHYDRATION [None]
  - DRY MOUTH [None]
  - RENAL FAILURE [None]
  - SYNCOPE [None]
